FAERS Safety Report 23179321 (Version 1)
Quarter: 2023Q4

REPORT INFORMATION
  Report Type: Spontaneous
  Country: US (occurrence: US)
  Receive Date: 20231113
  Receipt Date: 20231113
  Transmission Date: 20240110
  Serious: Yes (Other)
  Sender: FDA-Public Use
  Company Number: US-NOVOPROD-1137205

PATIENT
  Sex: Female

DRUGS (2)
  1. WEGOVY [Suspect]
     Active Substance: SEMAGLUTIDE
     Indication: Product used for unknown indication
     Dosage: UNK
     Route: 058
     Dates: start: 202302
  2. WEGOVY [Suspect]
     Active Substance: SEMAGLUTIDE
     Dosage: RESTARTED (1.7MG)
     Route: 058
     Dates: start: 202302

REACTIONS (2)
  - Brain neoplasm [Unknown]
  - Inappropriate schedule of product administration [Not Recovered/Not Resolved]
